FAERS Safety Report 10951468 (Version 5)
Quarter: 2015Q3

REPORT INFORMATION
  Report Type: Report from Study
  Country: CA (occurrence: CA)
  Receive Date: 20150324
  Receipt Date: 20150731
  Transmission Date: 20151125
  Serious: Yes (Death, Other)
  Sender: FDA-Public Use
  Company Number: PHHY2013CA097144

PATIENT
  Age: 77 Year
  Sex: Female

DRUGS (3)
  1. SANDOSTATIN LAR DEPOT [Suspect]
     Active Substance: OCTREOTIDE ACETATE
     Indication: NEUROENDOCRINE TUMOUR
     Dosage: 60 MG, EVERY 4 WEEKS
     Route: 030
     Dates: start: 20130828
  2. SANDOSTATIN [Suspect]
     Active Substance: OCTREOTIDE ACETATE
     Indication: NEUROENDOCRINE TUMOUR
     Dosage: TEST DOSE
     Route: 058
     Dates: start: 20130807, end: 20130807
  3. SANDOSTATIN LAR DEPOT [Suspect]
     Active Substance: OCTREOTIDE ACETATE
     Dosage: 30 MG, EVERY 4 WEEKS
     Route: 030
     Dates: end: 20150630

REACTIONS (29)
  - Asthenia [Unknown]
  - Acne [Unknown]
  - Musculoskeletal pain [Unknown]
  - Dyspnoea exertional [Unknown]
  - Haemoglobin decreased [Unknown]
  - Cough [Unknown]
  - Energy increased [Unknown]
  - Hypersomnia [Unknown]
  - Muscle spasms [Unknown]
  - Injection site mass [Unknown]
  - Injection site pain [Recovered/Resolved]
  - Arthralgia [Unknown]
  - Back pain [Recovering/Resolving]
  - Chest pain [Unknown]
  - Abdominal pain upper [Recovered/Resolved]
  - Diarrhoea [Unknown]
  - Fatigue [Unknown]
  - Blood potassium increased [Unknown]
  - Post procedural complication [Recovered/Resolved]
  - Eating disorder [Unknown]
  - Pain [Not Recovered/Not Resolved]
  - Oedema peripheral [Unknown]
  - Rash pruritic [Not Recovered/Not Resolved]
  - Pruritus [Recovering/Resolving]
  - Death [Fatal]
  - Sleep disorder [Unknown]
  - Weight decreased [Unknown]
  - Pain in extremity [Unknown]
  - Decreased appetite [Recovering/Resolving]

NARRATIVE: CASE EVENT DATE: 20131216
